FAERS Safety Report 9865591 (Version 1)
Quarter: 2014Q1

REPORT INFORMATION
  Report Type: Report from Study
  Country: US (occurrence: US)
  Receive Date: 20140203
  Receipt Date: 20140203
  Transmission Date: 20141002
  Serious: Yes (Hospitalization, Other)
  Sender: FDA-Public Use
  Company Number: PHEH2014US002329

PATIENT
  Age: 57 Year
  Sex: Female

DRUGS (9)
  1. TASIGNA [Suspect]
     Indication: LYMPHOCYTIC LEUKAEMIA
     Dosage: 400 MG, BID
     Route: 048
     Dates: start: 20090707
  2. VALTREX [Concomitant]
  3. TOPROL XL [Concomitant]
  4. LEVOTHYROXINE [Concomitant]
  5. METFORMIN [Concomitant]
  6. LISINOPRIL [Concomitant]
  7. LOVAZA [Concomitant]
  8. GABAPENTIN [Concomitant]
  9. MAGNESIUM OXIDE [Concomitant]

REACTIONS (1)
  - Toothache [Recovering/Resolving]
